FAERS Safety Report 6440461-X (Version None)
Quarter: 2009Q4

REPORT INFORMATION
  Report Type: 
  Country: None (occurrence: None)
  Receive Date: 20091113
  Receipt Date: 20091103
  Transmission Date: 20100525
  Serious: Yes (Death, Hospitalization, Other)
  Sender: FDA-Public Use
  Company Number: GB-PFIZER INC-2004218974GB

PATIENT
  Age: 77 Year
  Sex: Female

DRUGS (17)
  1. EXEMESTANE [Suspect]
     Indication: BREAST CANCER
     Dosage: 25 MG, 1X/DAY
     Dates: start: 20020517
  2. GLYCERYL TRINITRATE [Concomitant]
     Indication: ANGINA PECTORIS
     Dosage: 500 UG, 1X/DAY
     Route: 048
     Dates: start: 20000101
  3. ISOSORBIDE MONONITRATE [Concomitant]
     Indication: ATRIAL FIBRILLATION
     Dosage: 30 MG, 1X/DAY
     Route: 048
  4. ISOSORBIDE MONONITRATE [Concomitant]
     Indication: CORONARY ARTERY DISEASE
  5. SIMVASTATIN [Concomitant]
     Dosage: 40 MG, 1X/DAY
     Route: 048
  6. QUININE SULPHATE [Concomitant]
     Dosage: 300 MG, 1X/DAY
     Route: 048
  7. BENDROFLUAZIDE [Concomitant]
     Indication: HYPERTENSION
     Dosage: 125 UG, 1X/DAY
     Route: 048
     Dates: start: 19810101
  8. BENDROFLUAZIDE [Concomitant]
     Indication: CARDIAC VALVE DISEASE
  9. DIGOXIN [Concomitant]
     Dosage: UNK
     Route: 048
     Dates: start: 20011001
  10. LISINOPRIL [Concomitant]
     Indication: HYPERTENSION
     Dosage: 20 MG, 1X/DAY
     Route: 048
     Dates: start: 20010801
  11. FRUSEMIDE [Concomitant]
     Indication: HYPERTENSION
     Dosage: 20 MG, 1X/DAY
     Route: 048
     Dates: start: 20011001
  12. WARFARIN SODIUM [Concomitant]
     Dosage: 2 MG, 1X/DAY
     Route: 048
     Dates: start: 20011001
  13. TERBUTALINE SULFATE [Concomitant]
     Indication: CHRONIC OBSTRUCTIVE PULMONARY DISEASE
     Dosage: 500 UG, 1X/DAY
     Route: 065
     Dates: start: 19950101
  14. BUDESONIDE [Concomitant]
     Indication: CHRONIC OBSTRUCTIVE PULMONARY DISEASE
     Dosage: 200 UG, 1X/DAY
     Route: 065
     Dates: start: 19950101
  15. POTASSIUM CHLORIDE [Concomitant]
     Dosage: 600 MG, 1X/DAY
     Route: 048
     Dates: start: 19950101
  16. PARACETAMOL [Concomitant]
     Indication: PAIN
     Dosage: AS OCCASION REQUIRES
     Route: 048
  17. LANSOPRAZOLE [Concomitant]
     Indication: DYSPEPSIA
     Dosage: DAILY
     Route: 065

REACTIONS (5)
  - ABDOMINAL PAIN LOWER [None]
  - DEATH [None]
  - DIVERTICULUM INTESTINAL [None]
  - GASTROINTESTINAL DISORDER [None]
  - POLYP [None]
